FAERS Safety Report 7145023-7 (Version None)
Quarter: 2010Q4

REPORT INFORMATION
  Report Type: 
  Country: None (occurrence: None)
  Receive Date: 20101208
  Receipt Date: 20101130
  Transmission Date: 20110411
  Serious: Yes (Hospitalization)
  Sender: FDA-Public Use
  Company Number: KR-JNJFOC-20101200866

PATIENT
  Age: 71 Year
  Sex: Male

DRUGS (7)
  1. DURAGESIC-100 [Suspect]
     Indication: PAIN
     Dosage: EVERY 3 DAYS AS NEEDED
     Route: 062
  2. SUNITINIB MALATE [Suspect]
     Indication: PAIN MANAGEMENT
     Route: 048
  3. SUNITINIB MALATE [Suspect]
     Route: 048
  4. SUNITINIB MALATE [Suspect]
     Indication: GASTROINTESTINAL STROMAL TUMOUR
     Route: 048
  5. SUNITINIB MALATE [Suspect]
     Route: 048
  6. DOMPERIDONE [Concomitant]
     Route: 048
  7. MEGESTROL ACETATE [Concomitant]
     Route: 048

REACTIONS (4)
  - ALANINE AMINOTRANSFERASE INCREASED [None]
  - ASPARTATE AMINOTRANSFERASE INCREASED [None]
  - MENTAL STATUS CHANGES [None]
  - NARCOTIC INTOXICATION [None]
